FAERS Safety Report 12930539 (Version 3)
Quarter: 2016Q4

REPORT INFORMATION
  Report Type: Spontaneous
  Country: CA (occurrence: CA)
  Receive Date: 20161110
  Receipt Date: 20161221
  Transmission Date: 20170207
  Serious: Yes (Hospitalization)
  Sender: FDA-Public Use
  Company Number: CA-LPDUSPRD-20160976

PATIENT
  Age: 25 Year
  Sex: Female
  Weight: 53 kg

DRUGS (1)
  1. VENOFER [Suspect]
     Active Substance: IRON SUCROSE
     Dosage: 300 MG
     Route: 042
     Dates: start: 20160513, end: 20160513

REACTIONS (6)
  - Feeling abnormal [Unknown]
  - Body temperature increased [Unknown]
  - Tremor [Unknown]
  - Flushing [Unknown]
  - Chest discomfort [Unknown]
  - Headache [Unknown]
